FAERS Safety Report 11203828 (Version 3)
Quarter: 2016Q2

REPORT INFORMATION
  Report Type: Spontaneous
  Country: FR (occurrence: FR)
  Receive Date: 20150619
  Receipt Date: 20160608
  Transmission Date: 20160815
  Serious: Yes (Hospitalization)
  Sender: FDA-Public Use
  Company Number: FR-LUNDBECK-DKLU2000529

PATIENT
  Age: 56 Year
  Sex: Female

DRUGS (8)
  1. ZEBINIX [Suspect]
     Active Substance: ESLICARBAZEPINE ACETATE
     Route: 048
     Dates: start: 20150225, end: 20150308
  2. BIPRETERAX [Suspect]
     Active Substance: INDAPAMIDE\PERINDOPRIL
     Indication: HYPERTENSION
     Route: 048
     Dates: end: 20150308
  3. KEPPRA [Suspect]
     Active Substance: LEVETIRACETAM
     Route: 048
  4. ZEBINIX [Suspect]
     Active Substance: ESLICARBAZEPINE ACETATE
     Indication: EPILEPSY
     Route: 048
     Dates: start: 201502
  5. KEPPRA [Suspect]
     Active Substance: LEVETIRACETAM
     Indication: PRODUCT USED FOR UNKNOWN INDICATION
     Route: 048
  6. ATORVASTATIN [Concomitant]
     Active Substance: ATORVASTATIN
     Indication: PRODUCT USED FOR UNKNOWN INDICATION
     Route: 065
  7. URBANYL [Suspect]
     Active Substance: CLOBAZAM
     Indication: PRODUCT USED FOR UNKNOWN INDICATION
     Route: 048
     Dates: start: 2015
  8. ZEBINIX [Suspect]
     Active Substance: ESLICARBAZEPINE ACETATE
     Route: 048
     Dates: start: 20150220

REACTIONS (6)
  - Drug ineffective [Recovered/Resolved]
  - Asthenia [Recovered/Resolved]
  - Epilepsy [Recovered/Resolved]
  - Somnolence [Recovered/Resolved]
  - Hyponatraemia [Recovered/Resolved]
  - Dizziness [Recovered/Resolved]

NARRATIVE: CASE EVENT DATE: 20150308
